FAERS Safety Report 23755580 (Version 1)
Quarter: 2024Q2

REPORT INFORMATION
  Report Type: Spontaneous
  Country: FR (occurrence: FR)
  Receive Date: 20240418
  Receipt Date: 20240418
  Transmission Date: 20240716
  Serious: Yes (Hospitalization)
  Sender: FDA-Public Use
  Company Number: None

PATIENT
  Age: 74 Year
  Sex: Female
  Weight: 53 kg

DRUGS (4)
  1. MIRTAZAPINE [Suspect]
     Active Substance: MIRTAZAPINE
     Indication: Depression
     Dosage: UNK
     Route: 048
  2. FENTANYL [Suspect]
     Active Substance: FENTANYL\FENTANYL CITRATE
     Indication: Pain
     Dosage: UNK
     Route: 062
     Dates: start: 20240224, end: 20240303
  3. KEPPRA [Suspect]
     Active Substance: LEVETIRACETAM
     Indication: Meningioma
     Dosage: 500 MILLIGRAM, Q12H
     Dates: end: 2008
  4. PIRIBEDIL [Suspect]
     Active Substance: PIRIBEDIL
     Indication: Tremor
     Dosage: 50 MILLIGRAM, Q12H
     Route: 048

REACTIONS (4)
  - Hypomania [Recovered/Resolved]
  - Agitation [Recovered/Resolved]
  - Psychotic behaviour [Recovered/Resolved]
  - Confusional state [Recovered/Resolved]

NARRATIVE: CASE EVENT DATE: 20240229
